FAERS Safety Report 24877413 (Version 1)
Quarter: 2025Q1

REPORT INFORMATION
  Report Type: Spontaneous
  Country: US (occurrence: US)
  Receive Date: 20250123
  Receipt Date: 20250123
  Transmission Date: 20250409
  Serious: No
  Sender: PAREXEL
  Company Number: US-NAPO PHARMACEUTICALS-2024US003712

PATIENT

DRUGS (3)
  1. MYTESI [Suspect]
     Active Substance: CROFELEMER
     Indication: Diarrhoea
     Dosage: 125 MG, BID
     Route: 048
     Dates: start: 202403
  2. MYTESI [Suspect]
     Active Substance: CROFELEMER
     Indication: Gastroenteritis
  3. MYTESI [Suspect]
     Active Substance: CROFELEMER
     Indication: HIV infection

REACTIONS (1)
  - Mania [Unknown]
